FAERS Safety Report 6344328-7 (Version None)
Quarter: 2009Q3

REPORT INFORMATION
  Report Type: 
  Country: None (occurrence: None)
  Receive Date: 20090903
  Receipt Date: 20090820
  Transmission Date: 20100115
  Serious: Yes (Hospitalization, Disabling)
  Sender: FDA-Public Use
  Company Number: 2008AL009933

PATIENT
  Age: 80 Year
  Sex: Female

DRUGS (33)
  1. DIGOXIN [Suspect]
     Indication: ATRIAL FIBRILLATION
     Dosage: 0.125MG, QOD, PO; 0.25MG, DAILY, PO
     Route: 048
  2. TOPROL-XL [Concomitant]
  3. HYDROCHLOROTHIAZIDE [Concomitant]
  4. LISINOPRIL [Concomitant]
  5. NOLVADEX [Concomitant]
  6. CELEBREX [Concomitant]
  7. ASPIRIN [Concomitant]
  8. PRED FORTE [Concomitant]
  9. PROPO-N/APAP [Concomitant]
  10. DETROL LA [Concomitant]
  11. TAMOXIFEN CITRATE [Concomitant]
  12. LEVAQUIN [Concomitant]
  13. WARFARIN SODIUM [Concomitant]
  14. OXYCODONE HCL AND ACETAMINOPHEN [Concomitant]
  15. METOPROLOL TARTRATE [Concomitant]
  16. APAP/CODEIN [Concomitant]
  17. DAYPRO [Concomitant]
  18. SPORANOX [Concomitant]
  19. ZESTRIL [Concomitant]
  20. PAXIL [Concomitant]
  21. PROPULSID [Concomitant]
  22. ZESTORETIC [Concomitant]
  23. CEPHALEXIN [Concomitant]
  24. PRINZIDE [Concomitant]
  25. FERROUS GLUCOSE [Concomitant]
  26. DIFLUCAN [Concomitant]
  27. ERY-TAB [Concomitant]
  28. QUININE SULFATE [Concomitant]
  29. NAPROSYN [Concomitant]
  30. FUROSEMIDE [Concomitant]
  31. ARICEPT [Concomitant]
  32. PROCHLORPERAZINE [Concomitant]
  33. METRONIDAZOLE [Concomitant]

REACTIONS (14)
  - ANHEDONIA [None]
  - ANXIETY [None]
  - AZOTAEMIA [None]
  - BRADYCARDIA [None]
  - CARDIOACTIVE DRUG LEVEL INCREASED [None]
  - CHEST PAIN [None]
  - DEHYDRATION [None]
  - DYSPNOEA [None]
  - ECONOMIC PROBLEM [None]
  - FEELING ABNORMAL [None]
  - HEADACHE [None]
  - LUNG INFILTRATION [None]
  - MULTIPLE INJURIES [None]
  - WEIGHT DECREASED [None]
